FAERS Safety Report 8437784-1 (Version None)
Quarter: 2012Q2

REPORT INFORMATION
  Report Type: 
  Country: None (occurrence: None)
  Receive Date: 20120614
  Receipt Date: 20120510
  Transmission Date: 20120825
  Serious: No
  Sender: FDA-Public Use
  Company Number: US-AMGEN-USASP2012029574

PATIENT
  Age: 83 Year
  Sex: Female

DRUGS (4)
  1. PROLIA [Suspect]
     Indication: OSTEOPOROSIS POSTMENOPAUSAL
     Dosage: UNK UNK, Q6MO
     Dates: start: 20120501
  2. FISH OIL [Concomitant]
  3. CHOLESTEROL HEALTH [Concomitant]
  4. CENTRUM SILVER                     /01292501/ [Concomitant]

REACTIONS (5)
  - NIGHT SWEATS [None]
  - PAIN IN EXTREMITY [None]
  - BURNING SENSATION [None]
  - PARAESTHESIA [None]
  - MUSCULOSKELETAL PAIN [None]
